FAERS Safety Report 5591244-4 (Version None)
Quarter: 2007Q4

REPORT INFORMATION
  Report Type: 
  Country: None (occurrence: None)
  Receive Date: 20071212
  Receipt Date: 20070814
  Transmission Date: 20080405
  Serious: Yes (Death, Other)
  Sender: FDA-Public Use
  Company Number: USA-2007-0028820

PATIENT
  Age: 21 Year
  Sex: Male
  Weight: 117.9 kg

DRUGS (3)
  1. OXYCODONE HCL [Suspect]
     Indication: DRUG ABUSER
     Dosage: ORAL
     Route: 048
  2. DURAGESIC-100 [Suspect]
     Indication: DRUG ABUSER
     Dosage: TRA
     Route: 062
  3. METHADONE HCL [Suspect]
     Indication: DRUG ABUSE

REACTIONS (2)
  - DRUG ABUSE [None]
  - MULTIPLE DRUG OVERDOSE ACCIDENTAL [None]
